FAERS Safety Report 19019990 (Version 1)
Quarter: 2021Q1

REPORT INFORMATION
  Report Type: Spontaneous
  Country: ES (occurrence: ES)
  Receive Date: 20210317
  Receipt Date: 20210317
  Transmission Date: 20210420
  Serious: Yes (Hospitalization, Disabling, Other)
  Sender: FDA-Public Use
  Company Number: ES-ORGANON-1411ESP009481

PATIENT
  Age: 58 Year
  Sex: Female
  Weight: 58 kg

DRUGS (1)
  1. FOSAMAX [Suspect]
     Active Substance: ALENDRONATE SODIUM
     Indication: OSTEOPOROSIS
     Dosage: 70 MG, QW
     Route: 048
     Dates: start: 20021213

REACTIONS (15)
  - Femur fracture [Recovering/Resolving]
  - Nasopharyngitis [Unknown]
  - Depression [Unknown]
  - Muscle spasms [Unknown]
  - Nasopharyngitis [Unknown]
  - Neoplasm skin [Unknown]
  - Pain [Not Recovered/Not Resolved]
  - Femur fracture [Recovering/Resolving]
  - Foot deformity [Unknown]
  - Fungal infection [Unknown]
  - Back pain [Unknown]
  - Pollakiuria [Unknown]
  - Anaemia postoperative [Recovered/Resolved]
  - Iron deficiency anaemia [Recovered/Resolved]
  - Dysuria [Unknown]

NARRATIVE: CASE EVENT DATE: 20050124
